FAERS Safety Report 8746027 (Version 3)
Quarter: 2012Q4

REPORT INFORMATION
  Report Type: Report from Study
  Country: NL (occurrence: NL)
  Receive Date: 20120827
  Receipt Date: 20121129
  Transmission Date: 20130627
  Serious: Yes (Hospitalization)
  Sender: FDA-Public Use
  Company Number: NL-GENZYME-CLOF-1002268

PATIENT
  Age: 54 Year
  Sex: Female
  Weight: 67.6 kg

DRUGS (8)
  1. EVOLTRA [Suspect]
     Indication: ACUTE MYELOID LEUKAEMIA
     Dosage: 18 mg, qod
     Route: 042
     Dates: start: 20120701, end: 20120709
  2. ARA-C [Suspect]
     Indication: ACUTE MYELOID LEUKAEMIA
     Dosage: 180 mg, qd
     Route: 042
     Dates: start: 20120630, end: 20120709
  3. IDARUBICIN [Suspect]
     Indication: ACUTE MYELOID LEUKAEMIA
     Dosage: 18 mg, qod
     Route: 042
     Dates: start: 20120630, end: 20120704
  4. CEFTAZIDIME [Concomitant]
     Indication: FEBRILE NEUTROPENIA
     Dosage: 2000 mg, tid
     Route: 042
     Dates: start: 20120716, end: 20120802
  5. FLUCONAZOLE [Concomitant]
     Indication: INFECTIOUS DISEASE CARRIER
     Dosage: 400 mg, qd
     Route: 048
     Dates: start: 20120716, end: 20120801
  6. VALACICLOVIR [Concomitant]
     Indication: ANTIVIRAL PROPHYLAXIS
     Dosage: 500 mg, bid
     Route: 048
     Dates: start: 20120719, end: 20120729
  7. TEICOPLANIN [Concomitant]
     Indication: INFECTION
     Dosage: 400 mg, qd
     Route: 042
     Dates: start: 20120723, end: 20120802
  8. OXAZEPAM [Concomitant]
     Indication: INSOMNIA
     Dosage: 10 mg, qd
     Route: 048
     Dates: start: 20120725, end: 20120726

REACTIONS (2)
  - Escherichia urinary tract infection [Unknown]
  - Nodule [Recovered/Resolved]
